FAERS Safety Report 21772600 (Version 2)
Quarter: 2023Q1

REPORT INFORMATION
  Report Type: Spontaneous
  Country: US (occurrence: US)
  Receive Date: 20221223
  Receipt Date: 20230306
  Transmission Date: 20230417
  Serious: Yes (Other)
  Sender: FDA-Public Use
  Company Number: US-JAZZ-2022-US-038176

PATIENT
  Age: 26 Year
  Sex: Female

DRUGS (1)
  1. XYWAV [Suspect]
     Active Substance: CALCIUM OXYBATE\MAGNESIUM OXYBATE\POTASSIUM OXYBATE\SODIUM OXYBATE
     Indication: Product used for unknown indication
     Dosage: 8 GRAM
     Route: 048

REACTIONS (3)
  - Depressed level of consciousness [Recovered/Resolved]
  - Somnolence [Unknown]
  - Extra dose administered [Unknown]
